FAERS Safety Report 23513951 (Version 2)
Quarter: 2024Q2

REPORT INFORMATION
  Report Type: Report from Study
  Country: US (occurrence: US)
  Receive Date: 20240212
  Receipt Date: 20240513
  Transmission Date: 20240716
  Serious: No
  Sender: FDA-Public Use
  Company Number: US-AstraZeneca-CH-00559760A

PATIENT
  Age: 53 Year
  Sex: Female

DRUGS (1)
  1. STRENSIQ [Suspect]
     Active Substance: ASFOTASE ALFA
     Indication: Hypophosphatasia
     Dosage: 69 MILLIGRAM, SIX TIMES/WEEK
     Route: 058
     Dates: start: 20240105

REACTIONS (1)
  - Injection site discolouration [Recovering/Resolving]

NARRATIVE: CASE EVENT DATE: 20240101
